FAERS Safety Report 5520884-3 (Version None)
Quarter: 2007Q4

REPORT INFORMATION
  Report Type: 
  Country: None (occurrence: None)
  Receive Date: 20071119
  Receipt Date: 20071116
  Transmission Date: 20080405
  Serious: Yes (Other)
  Sender: FDA-Public Use
  Company Number: B0495647A

PATIENT
  Age: 19 Year
  Sex: Female

DRUGS (3)
  1. LAMICTAL [Suspect]
     Indication: EPILEPSY
     Dosage: 200MG PER DAY
     Route: 048
  2. YASMIN [Suspect]
     Indication: ORAL CONTRACEPTION
  3. TEGRETOL [Concomitant]
     Route: 048
     Dates: end: 20061101

REACTIONS (1)
  - PREGNANCY ON ORAL CONTRACEPTIVE [None]
